FAERS Safety Report 10010956 (Version 2)
Quarter: 2014Q1

REPORT INFORMATION
  Report Type: Spontaneous
  Country: JP (occurrence: None)
  Receive Date: 20140312
  Receipt Date: 20140313
  Transmission Date: 20141002
  Serious: Yes (Other)
  Sender: FDA-Public Use
  Company Number: 2014-000466

PATIENT
  Sex: 0

DRUGS (1)
  1. BENET (RISEDRONATE SODIUM) TABLET [Suspect]
     Route: 048

REACTIONS (1)
  - No adverse event [None]
